FAERS Safety Report 5087179-6 (Version None)
Quarter: 2006Q3

REPORT INFORMATION
  Report Type: 
  Country: None (occurrence: None)
  Receive Date: 20060821
  Receipt Date: 20060807
  Transmission Date: 20061208
  Serious: Yes (Hospitalization)
  Sender: FDA-Public Use
  Company Number: 2006091563

PATIENT
  Age: 55 Year
  Sex: Male
  Weight: 69 kg

DRUGS (8)
  1. SUTENT [Suspect]
     Indication: METASTATIC RENAL CELL CARCINOMA
     Dosage: SEE IMAGE
     Route: 048
     Dates: start: 20060701, end: 20060711
  2. SUTENT [Suspect]
     Indication: METASTATIC RENAL CELL CARCINOMA
     Dosage: SEE IMAGE
     Route: 048
     Dates: start: 20060712, end: 20060720
  3. SUTENT [Suspect]
     Indication: METASTATIC RENAL CELL CARCINOMA
     Dosage: SEE IMAGE
     Route: 048
     Dates: start: 20060725, end: 20060728
  4. HARTMANN (CALCIUM CHLORIDE ANHYDROUS, POTASSIUM CHLORIDE, SODIUM CHLOR [Concomitant]
  5. HAEMACCEL (POLYGELINE) [Concomitant]
  6. DEXTROSE [Concomitant]
  7. ZANTAC [Concomitant]
  8. PARENTROVITE (ASCORBIC ACID, NICOTINAMIDE, PYRIDOXINE HYDROCHLORIDE, R [Concomitant]

REACTIONS (3)
  - BLOOD PRESSURE DECREASED [None]
  - BLOOD SODIUM DECREASED [None]
  - DIZZINESS [None]
